FAERS Safety Report 5504463-X (Version None)
Quarter: 2007Q4

REPORT INFORMATION
  Report Type: 
  Country: None (occurrence: None)
  Receive Date: 20071030
  Receipt Date: 20070810
  Transmission Date: 20080405
  Serious: No
  Sender: FDA-Public Use
  Company Number: 266381

PATIENT
  Age: 56 Year
  Sex: Female

DRUGS (4)
  1. LEVEMIR [Suspect]
     Indication: INSULIN-REQUIRING TYPE II DIABETES MELLITUS
     Dosage: 150 IU, BID, SUBCUTANEOUS ; 180 IU, BID, SUBCUTANEOUS
     Route: 058
     Dates: start: 20070101, end: 20070806
  2. LEVEMIR [Suspect]
     Indication: INSULIN-REQUIRING TYPE II DIABETES MELLITUS
     Dosage: 150 IU, BID, SUBCUTANEOUS ; 180 IU, BID, SUBCUTANEOUS
     Route: 058
     Dates: start: 20070807
  3. LASIX [Concomitant]
  4. NOVOLOG [Concomitant]

REACTIONS (2)
  - COORDINATION ABNORMAL [None]
  - RENAL IMPAIRMENT [None]
